FAERS Safety Report 19282594 (Version 1)
Quarter: 2021Q2

REPORT INFORMATION
  Report Type: Spontaneous
  Country: US (occurrence: US)
  Receive Date: 20210521
  Receipt Date: 20210521
  Transmission Date: 20210717
  Serious: No
  Sender: FDA-Public Use
  Company Number: US-SA-2021SA166874

PATIENT
  Age: 34 Year
  Sex: Female

DRUGS (2)
  1. DUPIXENT [Suspect]
     Active Substance: DUPILUMAB
     Indication: ILLNESS
     Route: 058
  2. ETONOGESTREL [Concomitant]
     Active Substance: ETONOGESTREL

REACTIONS (3)
  - Fall [Unknown]
  - Product use in unapproved indication [Unknown]
  - Foot fracture [Unknown]
